FAERS Safety Report 5728031-X (Version None)
Quarter: 2008Q2

REPORT INFORMATION
  Report Type: 
  Country: None (occurrence: None)
  Receive Date: 20080505
  Receipt Date: 20080407
  Transmission Date: 20081010
  Serious: No
  Sender: FDA-Public Use
  Company Number: US-BOEHRINGER INGELHEIM GMBH, GERMANY-2008-BP-05548BP

PATIENT
  Age: 71 Year
  Sex: Male

DRUGS (4)
  1. FLOMAX [Suspect]
     Indication: BENIGN PROSTATIC HYPERPLASIA
     Route: 048
     Dates: start: 20070301
  2. FLOMAX [Suspect]
     Indication: BLADDER DISORDER
  3. FLOMAX [Suspect]
     Indication: MICTURITION URGENCY
  4. LIPITOR [Concomitant]

REACTIONS (3)
  - ERECTILE DYSFUNCTION [None]
  - GENITAL DISORDER MALE [None]
  - PENIS DISORDER [None]
